FAERS Safety Report 17114434 (Version 1)
Quarter: 2019Q4

REPORT INFORMATION
  Report Type: Spontaneous
  Country: JP (occurrence: JP)
  Receive Date: 20191205
  Receipt Date: 20191205
  Transmission Date: 20200122
  Serious: Yes (Death, Hospitalization, Other)
  Sender: FDA-Public Use
  Company Number: JP-GLAXOSMITHKLINE-JP2019JPN218355

PATIENT
  Age: 6 Decade
  Sex: Male

DRUGS (9)
  1. FLOLAN [Suspect]
     Active Substance: EPOPROSTENOL SODIUM
     Indication: PULMONARY CAPILLARY HAEMANGIOMATOSIS
  2. IMATINIB. [Concomitant]
     Active Substance: IMATINIB MESYLATE
     Indication: PULMONARY VENO-OCCLUSIVE DISEASE
     Dosage: UNK
  3. OXYGEN. [Concomitant]
     Active Substance: OXYGEN
     Dosage: UNK
  4. SILDENAFIL CITRATE. [Concomitant]
     Active Substance: SILDENAFIL CITRATE
     Dosage: UNK
  5. IMATINIB. [Concomitant]
     Active Substance: IMATINIB MESYLATE
     Indication: PULMONARY CAPILLARY HAEMANGIOMATOSIS
  6. FLOLAN [Suspect]
     Active Substance: EPOPROSTENOL SODIUM
     Indication: PULMONARY ARTERIAL HYPERTENSION
     Dosage: UNK
     Route: 042
  7. BOSENTAN HYDRATE [Concomitant]
     Dosage: UNK
  8. WARFARIN POTASSIUM [Concomitant]
     Active Substance: WARFARIN POTASSIUM
     Dosage: UNK
  9. FLOLAN [Suspect]
     Active Substance: EPOPROSTENOL SODIUM
     Indication: PULMONARY VENO-OCCLUSIVE DISEASE
     Dosage: 2.5 NG/KG/MIN
     Route: 042

REACTIONS (8)
  - Dyspnoea [Unknown]
  - Oxygen saturation decreased [Unknown]
  - Pulmonary oedema [Unknown]
  - Product use in unapproved indication [Unknown]
  - Cardiac failure [Unknown]
  - Infection [Unknown]
  - Pulmonary alveolar haemorrhage [Fatal]
  - Haemoptysis [Unknown]
